FAERS Safety Report 17300149 (Version 1)
Quarter: 2020Q1

REPORT INFORMATION
  Report Type: Spontaneous
  Country: US (occurrence: US)
  Receive Date: 20200103
  Receipt Date: 20200103
  Transmission Date: 20200409
  Serious: No
  Sender: FDA-Public Use
  Company Number: None

PATIENT
  Age: 75 Year
  Sex: Male

DRUGS (1)
  1. IMATINIB 400MG  TAB (X30) [Suspect]
     Active Substance: IMATINIB
     Route: 048
     Dates: start: 201710, end: 201812

REACTIONS (8)
  - Vomiting [None]
  - Nausea [None]
  - Lethargy [None]
  - Depression [None]
  - Diplopia [None]
  - Product substitution issue [None]
  - Diarrhoea [None]
  - Cyst [None]

NARRATIVE: CASE EVENT DATE: 20200103
